FAERS Safety Report 9688885 (Version 2)
Quarter: 2013Q4

REPORT INFORMATION
  Report Type: Spontaneous
  Country: US (occurrence: None)
  Receive Date: 20131113
  Receipt Date: 20131231
  Transmission Date: 20140711
  Serious: Yes (Other)
  Sender: FDA-Public Use
  Company Number: AUR-APL-2013-09508

PATIENT
  Age: 57 Year
  Sex: Female
  Weight: 61.22 kg

DRUGS (7)
  1. TERBINAFINE [Suspect]
     Indication: PRODUCT USED FOR UNKNOWN INDICATION
     Dosage: 250MG (250MG, 1 IN 1 D) ORAL
     Route: 048
     Dates: start: 20130913
  2. PREMARIN [Suspect]
     Indication: VULVOVAGINAL DRYNESS
     Dosage: VAGINAL
     Route: 067
     Dates: start: 2012
  3. BABY ASPIRIN (ACETYLSALICYLIC ACID) [Concomitant]
  4. VITAMIN D (ERGOCALCIFEROL) [Concomitant]
  5. CALCIUM (CALCIUM) [Concomitant]
  6. CO-Q-10 (UBIDECARENONE) [Concomitant]
  7. OMEGA 3 (FISH OIL) [Concomitant]

REACTIONS (3)
  - Renal neoplasm [None]
  - Drug interaction [None]
  - Vaginal haemorrhage [None]
